FAERS Safety Report 17690224 (Version 2)
Quarter: 2020Q2

REPORT INFORMATION
  Report Type: Not Available
  Country: US (occurrence: US)
  Receive Date: 20200421
  Receipt Date: 20200601
  Transmission Date: 20200714
  Serious: No
  Sender: FDA-Public Use
  Company Number: US-NEUROCRINE BIOSCIENCES INC.-2020NBI01291

PATIENT
  Age: 69 Year
  Sex: Female

DRUGS (17)
  1. TYLENOL [Concomitant]
     Active Substance: ACETAMINOPHEN
     Route: 048
     Dates: start: 20190225
  2. ACETAZOLAMIDE. [Concomitant]
     Active Substance: ACETAZOLAMIDE
     Indication: SEIZURE
     Route: 048
     Dates: start: 20161115
  3. SEROQUEL [Concomitant]
     Active Substance: QUETIAPINE FUMARATE
     Indication: BIPOLAR DISORDER
  4. INGREZZA [Suspect]
     Active Substance: VALBENAZINE
     Route: 048
     Dates: start: 20200411, end: 202004
  5. VITAMIN D [Concomitant]
     Active Substance: VITAMIN D NOS
     Dates: start: 20180105
  6. LISINOPRIL. [Concomitant]
     Active Substance: LISINOPRIL
     Indication: HYPERTENSION
     Route: 048
     Dates: start: 20190719
  7. SPIRONOLACTONE. [Concomitant]
     Active Substance: SPIRONOLACTONE
     Indication: WEIGHT INCREASED
     Route: 048
     Dates: start: 20180427
  8. TOPAMAX [Concomitant]
     Active Substance: TOPIRAMATE
     Indication: SEIZURE
     Route: 048
     Dates: start: 20161115
  9. AMLODIPINE [Concomitant]
     Active Substance: AMLODIPINE BESYLATE
     Indication: HYPERTENSION
     Route: 048
     Dates: start: 20171229
  10. HALDOL [Concomitant]
     Active Substance: HALOPERIDOL
  11. TYLENOL [Concomitant]
     Active Substance: ACETAMINOPHEN
     Indication: MUSCULOSKELETAL PAIN
     Route: 048
     Dates: start: 20190220
  12. SENNA PLUS [Concomitant]
     Active Substance: DOCUSATE SODIUM\SENNOSIDES\SENNOSIDES A AND B
     Indication: CONSTIPATION
     Route: 048
     Dates: start: 20180122
  13. INGREZZA [Suspect]
     Active Substance: VALBENAZINE
     Indication: TARDIVE DYSKINESIA
     Dosage: STARTER PACK
     Route: 048
     Dates: start: 20200403, end: 20200410
  14. VITAMIN B12 [Concomitant]
     Active Substance: CYANOCOBALAMIN
     Indication: VITAMIN B12 DEFICIENCY
     Route: 048
     Dates: start: 20190604
  15. LAMOTRIGINE. [Concomitant]
     Active Substance: LAMOTRIGINE
     Indication: SEIZURE
     Route: 048
     Dates: start: 20191115
  16. POTASSIUM CHLORIDE. [Concomitant]
     Active Substance: POTASSIUM CHLORIDE
     Indication: HYPOKALAEMIA
     Route: 048
  17. SEROQUEL [Concomitant]
     Active Substance: QUETIAPINE FUMARATE
     Indication: VASCULAR DEMENTIA
     Route: 048
     Dates: start: 20191231

REACTIONS (3)
  - Lethargy [Recovered/Resolved]
  - Mental disorder [Recovered/Resolved]
  - COVID-19 [Unknown]

NARRATIVE: CASE EVENT DATE: 20200403
